FAERS Safety Report 8204791-3 (Version None)
Quarter: 2012Q1

REPORT INFORMATION
  Report Type: 
  Country: None (occurrence: None)
  Receive Date: 20120313
  Receipt Date: 20120307
  Transmission Date: 20120608
  Serious: Yes (Hospitalization)
  Sender: FDA-Public Use
  Company Number: JP-PFIZER INC-2012061480

PATIENT

DRUGS (1)
  1. ALPRAZOLAM [Suspect]
     Indication: DEPRESSION
     Dosage: UNK, AS NEEDED
     Route: 064

REACTIONS (10)
  - TRICUSPID VALVE INCOMPETENCE [None]
  - VENTRICULAR HYPOKINESIA [None]
  - PERSISTENT FOETAL CIRCULATION [None]
  - MATERNAL EXPOSURE TIMING UNSPECIFIED [None]
  - RIGHT VENTRICULAR HYPERTROPHY [None]
  - DUCTUS ARTERIOSUS PREMATURE CLOSURE [None]
  - OXYGEN SATURATION DECREASED [None]
  - CAESAREAN SECTION [None]
  - RIGHT VENTRICULAR FAILURE [None]
  - BLOOD PRESSURE DECREASED [None]
